FAERS Safety Report 10512236 (Version 1)
Quarter: 2014Q3

REPORT INFORMATION
  Report Type: Spontaneous
  Country: US (occurrence: None)
  Receive Date: 20140926
  Receipt Date: 20140926
  Transmission Date: 20150326
  Serious: No
  Sender: FDA-Public Use
  Company Number: 1000069999

PATIENT
  Age: 52 Year
  Sex: Female

DRUGS (4)
  1. REGLAN (METOCLOPRAMIDE) (METOCLOPRAMIDE) [Concomitant]
  2. LINZESS [Suspect]
     Active Substance: LINACLOTIDE
     Indication: CONSTIPATION
     Dosage: 145 MCG (145 MCG, 1 IN 1 D), ORAL
     Route: 048
     Dates: start: 20140814
  3. OXYCONTIN (OXYCODONE HYDROCHLORIDE) (OXYCODONE HYDROCHLORIDE) [Concomitant]
  4. OXYCODONE (OXYCODONE) (OXOCODONE) [Concomitant]

REACTIONS (2)
  - Off label use [None]
  - Rash pruritic [None]

NARRATIVE: CASE EVENT DATE: 20140814
